FAERS Safety Report 16301634 (Version 6)
Quarter: 2019Q3

REPORT INFORMATION
  Report Type: Report from Study
  Country: CA (occurrence: CA)
  Receive Date: 20190511
  Receipt Date: 20190912
  Transmission Date: 20191004
  Serious: Yes (Disabling)
  Sender: FDA-Public Use
  Company Number: CA-AMGEN-CANNI2019075756

PATIENT
  Age: 65 Year
  Sex: Female

DRUGS (2)
  1. AIMOVIG [Suspect]
     Active Substance: ERENUMAB-AOOE
     Indication: MIGRAINE PROPHYLAXIS
     Dosage: 140 MILLIGRAM, QMO
     Route: 058
     Dates: start: 20190424
  2. AIMOVIG [Suspect]
     Active Substance: ERENUMAB-AOOE
     Dosage: 140 MILLIGRAM, QMO
     Route: 058
     Dates: end: 20190905

REACTIONS (7)
  - Palpitations [Unknown]
  - Fatigue [Recovered/Resolved]
  - Migraine [Recovering/Resolving]
  - Constipation [Unknown]
  - Pain [Recovering/Resolving]
  - Drug ineffective [Unknown]
  - Hyperhidrosis [Unknown]

NARRATIVE: CASE EVENT DATE: 20190424
